FAERS Safety Report 23381239 (Version 1)
Quarter: 2024Q1

REPORT INFORMATION
  Report Type: Spontaneous
  Country: GB (occurrence: GB)
  Receive Date: 20240109
  Receipt Date: 20240109
  Transmission Date: 20240410
  Serious: Yes (Other)
  Sender: FDA-Public Use
  Company Number: None

PATIENT
  Age: 66 Year
  Weight: 48 kg

DRUGS (6)
  1. LETROZOLE [Suspect]
     Active Substance: LETROZOLE
     Indication: Breast cancer
     Dosage: 2.5MG ONCE A DAY IN THE MORNING
     Route: 065
     Dates: start: 20231111
  2. TRASTUZUMAB [Concomitant]
     Active Substance: TRASTUZUMAB
     Indication: Breast cancer
     Dates: start: 20231128
  3. LEVEMIR [Concomitant]
     Active Substance: INSULIN DETEMIR
     Indication: Adverse drug reaction
     Dates: start: 2010
  4. CALCIUM CARBONATE\CHOLECALCIFEROL [Concomitant]
     Active Substance: CALCIUM CARBONATE\CHOLECALCIFEROL
     Indication: Adverse drug reaction
     Dates: start: 202305
  5. NOVORAPID [Concomitant]
     Active Substance: INSULIN ASPART
     Indication: Adverse drug reaction
     Dates: start: 2010
  6. BEZAFIBRATE [Concomitant]
     Active Substance: BEZAFIBRATE
     Indication: Blood cholesterol increased
     Dates: start: 2010

REACTIONS (7)
  - Insomnia [Not Recovered/Not Resolved]
  - Stress urinary incontinence [Not Recovered/Not Resolved]
  - Back pain [Not Recovered/Not Resolved]
  - Atrophic vulvovaginitis [Not Recovered/Not Resolved]
  - Urge incontinence [Not Recovered/Not Resolved]
  - Hypertrichosis [Not Recovered/Not Resolved]
  - Stress urinary incontinence [Not Recovered/Not Resolved]

NARRATIVE: CASE EVENT DATE: 20231119
